FAERS Safety Report 22324411 (Version 1)
Quarter: 2023Q2

REPORT INFORMATION
  Report Type: Report from Study
  Country: None (occurrence: FR)
  Receive Date: 20230516
  Receipt Date: 20230516
  Transmission Date: 20230721
  Serious: Yes (Other)
  Sender: FDA-Public Use
  Company Number: FR-Ascend Therapeutics US, LLC-2141504

PATIENT
  Age: 52 Year

DRUGS (3)
  1. ESTROGEL [Suspect]
     Active Substance: ESTRADIOL
     Indication: Product used for unknown indication
     Route: 065
  2. ESTRADIOL [Suspect]
     Active Substance: ESTRADIOL
     Route: 065
  3. LEVOTHYROXINE SODIUM [Suspect]
     Active Substance: LEVOTHYROXINE SODIUM
     Route: 065

REACTIONS (14)
  - Hyperthyroidism [Unknown]
  - Anxiety [Unknown]
  - Gastrooesophageal reflux disease [Unknown]
  - Tri-iodothyronine increased [Unknown]
  - Dyspnoea [Unknown]
  - Insomnia [Unknown]
  - Palpitations [Unknown]
  - Fatigue [Unknown]
  - Arthralgia [Unknown]
  - Menopause [Unknown]
  - Drug intolerance [Unknown]
  - Weight decreased [Unknown]
  - Asthenia [Unknown]
  - Depression [Unknown]

NARRATIVE: CASE EVENT DATE: 20190101
